FAERS Safety Report 7069498-7 (Version None)
Quarter: 2010Q4

REPORT INFORMATION
  Report Type: 
  Country: None (occurrence: None)
  Receive Date: 20101028
  Receipt Date: 20100308
  Transmission Date: 20110411
  Serious: No
  Sender: FDA-Public Use
  Company Number: US-WYE-H13974510

PATIENT
  Sex: Female
  Weight: 74 kg

DRUGS (4)
  1. PANTOPRAZOLE [Suspect]
     Indication: GASTROOESOPHAGEAL REFLUX DISEASE
     Route: 048
     Dates: start: 20100302, end: 20100304
  2. ASPIRIN [Concomitant]
  3. VITAMIN D3 [Concomitant]
  4. THYROID [Concomitant]

REACTIONS (4)
  - DIZZINESS [None]
  - HEADACHE [None]
  - NASAL CONGESTION [None]
  - NIGHTMARE [None]
